FAERS Safety Report 6736172-3 (Version None)
Quarter: 2010Q2

REPORT INFORMATION
  Report Type: 
  Country: None (occurrence: None)
  Receive Date: 20100521
  Receipt Date: 20100511
  Transmission Date: 20101027
  Serious: Yes (Other)
  Sender: FDA-Public Use
  Company Number: DE-ROCHE-703810

PATIENT
  Sex: Female

DRUGS (2)
  1. AVASTIN [Suspect]
     Indication: TUMOUR ULCERATION
     Route: 065
  2. TAXOL [Concomitant]
     Indication: TUMOUR ULCERATION

REACTIONS (1)
  - TUMOUR NECROSIS [None]
